FAERS Safety Report 16434335 (Version 7)
Quarter: 2021Q4

REPORT INFORMATION
  Report Type: Spontaneous
  Country: JP (occurrence: JP)
  Receive Date: 20190614
  Receipt Date: 20211231
  Transmission Date: 20220303
  Serious: Yes (Other)
  Sender: FDA-Public Use
  Company Number: JP-UCBSA-2019025634

PATIENT
  Age: 35 Year
  Sex: Female
  Weight: 60 kg

DRUGS (32)
  1. XYZAL [Suspect]
     Active Substance: LEVOCETIRIZINE DIHYDROCHLORIDE
     Indication: Asthma prophylaxis
     Dosage: UNK UNK, 1D
     Route: 048
  2. BENLYSTA [Suspect]
     Active Substance: BELIMUMAB
     Indication: Systemic lupus erythematosus
     Dosage: 200 MG, WE (200 MG EVERY WEEK, 2 TIME IN TOTAL)
     Route: 058
     Dates: start: 20180904, end: 20180912
  3. BENLYSTA [Suspect]
     Active Substance: BELIMUMAB
     Dosage: 200 MG/WEEK , 0-6TH WEEK
     Route: 058
     Dates: start: 20190225, end: 20190521
  4. FLUTICASONE PROPIONATE\FORMOTEROL FUMARATE [Suspect]
     Active Substance: FLUTICASONE PROPIONATE\FORMOTEROL FUMARATE
     Indication: Asthma prophylaxis
     Dosage: UNK ?G, UNK
     Route: 055
  5. FLUTICASONE PROPIONATE\FORMOTEROL FUMARATE [Suspect]
     Active Substance: FLUTICASONE PROPIONATE\FORMOTEROL FUMARATE
     Dosage: 2 INHALATIONS/DAY, 0-38TH WEEK
  6. PROCATEROL HYDROCHLORIDE [Suspect]
     Active Substance: PROCATEROL HYDROCHLORIDE
     Indication: Asthma prophylaxis
     Dosage: UNK ?G, UNK
     Route: 055
  7. PREDONINE [Suspect]
     Active Substance: PREDNISOLONE
     Indication: Systemic lupus erythematosus
     Dosage: 10 MG, 1D
     Route: 048
     Dates: start: 20180904, end: 20180929
  8. PREDONINE [Suspect]
     Active Substance: PREDNISOLONE
     Dosage: 5 MG, 1D
     Route: 048
     Dates: start: 20180930, end: 20181104
  9. PREDONINE [Suspect]
     Active Substance: PREDNISOLONE
     Dosage: 3 MG, 1D
     Route: 048
     Dates: start: 20181105, end: 20181202
  10. PREDONINE [Suspect]
     Active Substance: PREDNISOLONE
     Dosage: 2 MG, 1D
     Route: 048
     Dates: start: 20181203, end: 20190128
  11. PREDONINE [Suspect]
     Active Substance: PREDNISOLONE
     Dosage: 1 MG, 1D
     Route: 048
     Dates: start: 20190129
  12. PREDONINE [Suspect]
     Active Substance: PREDNISOLONE
     Dosage: 1 MG/DAY, 0-38TH WEEK
  13. NEXIUM [Concomitant]
     Active Substance: ESOMEPRAZOLE MAGNESIUM
     Indication: Gastrooesophageal reflux disease
     Dosage: UNK
  14. AMLODIPINE BESYLATE\IRBESARTAN [Concomitant]
     Active Substance: AMLODIPINE BESYLATE\IRBESARTAN
     Indication: Hypertension
     Dosage: UNK UNK, 1D
  15. ALFACALCIDOL [Concomitant]
     Active Substance: ALFACALCIDOL
     Indication: Osteoporosis prophylaxis
     Dosage: 1 UNK, UNK
  16. TRAMADOL HYDROCHLORIDE [Concomitant]
     Active Substance: TRAMADOL HYDROCHLORIDE
     Indication: Systemic lupus erythematosus
     Dosage: UNK
  17. AMBROXOL HYDROCHLORIDE [Concomitant]
     Active Substance: AMBROXOL HYDROCHLORIDE
     Indication: Asthma prophylaxis
     Dosage: UNK
  18. AMBROXOL HYDROCHLORIDE [Concomitant]
     Active Substance: AMBROXOL HYDROCHLORIDE
     Dosage: 45 MG/DAY, 0-38TH WEEK
  19. VITANEURIN [THIAMINE HYDROCHLORIDE] [Concomitant]
     Indication: Prophylaxis
     Dosage: UNK
  20. GLYCOSAMINOGLYCANS [Concomitant]
     Active Substance: GLYCOSAMINOGLYCANS
     Indication: Dry skin prophylaxis
     Dosage: UNK
  21. POTASSIUM ASPARTATE [Concomitant]
     Active Substance: POTASSIUM ASPARTATE
     Indication: Hypokalaemia
     Dosage: UNK
  22. MONTELUKAST SODIUM [Concomitant]
     Active Substance: MONTELUKAST SODIUM
     Indication: Asthma prophylaxis
     Dosage: UNK
  23. MONTELUKAST SODIUM [Concomitant]
     Active Substance: MONTELUKAST SODIUM
     Dosage: 10 MG/DAY,0-38TH WEEK
     Dates: start: 20180904, end: 20180920
  24. CARBOCYSTEINE [Concomitant]
     Active Substance: CARBOCYSTEINE
     Indication: Asthma prophylaxis
     Dosage: UNK
  25. URSO [Concomitant]
     Active Substance: URSODIOL
     Indication: Antiviral prophylaxis
     Dosage: UNK
  26. VONOPRAZAN FUMARATE [Concomitant]
     Active Substance: VONOPRAZAN FUMARATE
     Indication: Gastrooesophageal reflux prophylaxis
     Dosage: UNK
  27. CYCLOPHOSPHAMIDE [Concomitant]
     Active Substance: CYCLOPHOSPHAMIDE
     Indication: Systemic lupus erythematosus
     Dosage: UNK
  28. LOXOPROFEN SODIUM [Concomitant]
     Active Substance: LOXOPROFEN SODIUM
     Indication: Product used for unknown indication
     Dosage: UNK
  29. NIFEDIPINE [Concomitant]
     Active Substance: NIFEDIPINE
     Indication: Product used for unknown indication
     Dosage: 20 MG/DAY, 0-8TH WEEK
  30. SPIRONOLACTONE [Concomitant]
     Active Substance: SPIRONOLACTONE
     Indication: Product used for unknown indication
     Dosage: 12.5 MG/DAY, 0-8TH WEEK
  31. PRIMPERAN [Concomitant]
     Active Substance: METOCLOPRAMIDE HYDROCHLORIDE
     Indication: Product used for unknown indication
     Dosage: 15 MG/DAY, ONLY 8TH WEEK
     Dates: start: 20190618, end: 20190624
  32. CALONAL [Concomitant]
     Active Substance: ACETAMINOPHEN
     Indication: Product used for unknown indication
     Dosage: 900 MG/DAY, 8-9TH WEEK
     Dates: start: 20190618, end: 20190702

REACTIONS (6)
  - Oesophageal candidiasis [Recovered/Resolved]
  - Laryngopharyngitis [Recovered/Resolved]
  - Viral upper respiratory tract infection [Recovered/Resolved]
  - Asthma [Recovered/Resolved]
  - Gastrooesophageal reflux disease [Recovering/Resolving]
  - Maternal exposure during pregnancy [Unknown]

NARRATIVE: CASE EVENT DATE: 20180918
